FAERS Safety Report 5672437-4 (Version None)
Quarter: 2008Q1

REPORT INFORMATION
  Report Type: 
  Country: None (occurrence: None)
  Receive Date: 20080318
  Receipt Date: 20080318
  Transmission Date: 20080703
  Serious: Yes (Life-Threatening, Hospitalization)
  Sender: FDA-Public Use
  Company Number: None

PATIENT
  Age: 55 Year
  Sex: Male
  Weight: 93.441 kg

DRUGS (1)
  1. QUININE [Suspect]
     Indication: MUSCLE SPASMS
     Dosage: 1 PILL AS NEEDED PO
     Route: 048
     Dates: start: 20070101, end: 20080201

REACTIONS (7)
  - BALANCE DISORDER [None]
  - CEREBROVASCULAR ACCIDENT [None]
  - DYSSTASIA [None]
  - HEADACHE [None]
  - PLATELET COUNT DECREASED [None]
  - THROMBOSIS [None]
  - VERTIGO [None]
